FAERS Safety Report 19839930 (Version 1)
Quarter: 2021Q3

REPORT INFORMATION
  Report Type: Spontaneous
  Country: FR (occurrence: FR)
  Receive Date: 20210916
  Receipt Date: 20210916
  Transmission Date: 20211014
  Serious: Yes (Hospitalization, Other)
  Sender: FDA-Public Use
  Company Number: FR-VALIDUS PHARMACEUTICALS LLC-FR-VDP-2021-001522

PATIENT
  Age: 81 Year
  Sex: Male

DRUGS (2)
  1. FUROSEMIDE. [Suspect]
     Active Substance: FUROSEMIDE
     Indication: CARDIAC FAILURE
     Dosage: LONG COURSE INTRODUCTION DATE NOT AVAILABLE
     Route: 048
     Dates: end: 20210113
  2. HYDROCHLOROTHIAZIDE. [Suspect]
     Active Substance: HYDROCHLOROTHIAZIDE
     Indication: CARDIAC FAILURE
     Dosage: 25 MG, QD
     Route: 048
     Dates: start: 202101, end: 20210113

REACTIONS (5)
  - Acute kidney injury [Recovered/Resolved]
  - Hypokalaemia [Recovered/Resolved]
  - Hypovolaemia [Recovered/Resolved]
  - Hyponatraemia [Recovered/Resolved]
  - Condition aggravated [Recovered/Resolved]

NARRATIVE: CASE EVENT DATE: 20210113
